FAERS Safety Report 7324653-3 (Version None)
Quarter: 2011Q1

REPORT INFORMATION
  Report Type: 
  Country: None (occurrence: None)
  Receive Date: 20110301
  Receipt Date: 20110216
  Transmission Date: 20110831
  Serious: Yes (Other)
  Sender: FDA-Public Use
  Company Number: GXKR2011DK00957

PATIENT
  Age: 30 Year
  Sex: Female
  Weight: 120 kg

DRUGS (3)
  1. CITALOPRAM [Suspect]
     Indication: DEPRESSION
     Dosage: 20 MG DAILY
     Route: 048
     Dates: end: 20101109
  2. CITALOPRAM [Suspect]
     Indication: ANXIETY
     Dosage: 10 MG DAILY
     Route: 048
     Dates: start: 20101029
  3. MICROGYN [Concomitant]
     Indication: CONTRACEPTION

REACTIONS (9)
  - NAUSEA [None]
  - HYPERACUSIS [None]
  - DIARRHOEA [None]
  - ARRHYTHMIA [None]
  - DEREALISATION [None]
  - DRY MOUTH [None]
  - ANXIETY [None]
  - MICTURITION URGENCY [None]
  - TREMOR [None]
